FAERS Safety Report 7715269-5 (Version None)
Quarter: 2011Q3

REPORT INFORMATION
  Report Type: 
  Country: None (occurrence: None)
  Receive Date: 20110829
  Receipt Date: 20110825
  Transmission Date: 20111222
  Serious: Yes (Death, Hospitalization, Other)
  Sender: FDA-Public Use
  Company Number: PHHY2011CH75951

PATIENT
  Sex: Female

DRUGS (1)
  1. SANDIMMUNE [Suspect]
     Indication: PSORIASIS
     Dosage: 75 MG, UNK
     Route: 048
     Dates: start: 20110401, end: 20110601

REACTIONS (9)
  - OEDEMA PERIPHERAL [None]
  - HYPERKALAEMIA [None]
  - HYPOTENSION [None]
  - FLUID OVERLOAD [None]
  - RENAL FAILURE ACUTE [None]
  - HYPOVOLAEMIA [None]
  - ABDOMINAL PAIN UPPER [None]
  - VOMITING [None]
  - PLEURAL EFFUSION [None]
